FAERS Safety Report 5449822-9 (Version None)
Quarter: 2007Q3

REPORT INFORMATION
  Report Type: 
  Country: None (occurrence: None)
  Receive Date: 20070910
  Receipt Date: 20070831
  Transmission Date: 20080115
  Serious: Yes (Hospitalization)
  Sender: FDA-Public Use
  Company Number: 2007BI018623

PATIENT
  Age: 48 Year
  Sex: Male

DRUGS (1)
  1. AVONEX [Suspect]
     Indication: MULTIPLE SCLEROSIS
     Dosage: 30 UG;QW;IM
     Route: 030
     Dates: start: 20070811

REACTIONS (8)
  - ANXIETY [None]
  - BLOOD CREATINE PHOSPHOKINASE INCREASED [None]
  - GAIT DISTURBANCE [None]
  - INFLUENZA LIKE ILLNESS [None]
  - MULTIPLE SCLEROSIS RELAPSE [None]
  - NEURALGIA [None]
  - RESIDUAL URINE [None]
  - RETINAL DETACHMENT [None]
